FAERS Safety Report 14250545 (Version 1)
Quarter: 2017Q4

REPORT INFORMATION
  Report Type: Spontaneous
  Country: US (occurrence: US)
  Receive Date: 20171205
  Receipt Date: 20171205
  Transmission Date: 20180321
  Serious: No
  Sender: FDA-Public Use
  Company Number: US-TEVA-824047ACC

PATIENT
  Sex: Female

DRUGS (2)
  1. NYSTATIN. [Suspect]
     Active Substance: NYSTATIN
     Indication: FUNGAL INFECTION
     Dosage: 100,000 UNITS/GRAM
     Route: 061
     Dates: start: 20171005
  2. NYSTATIN. [Suspect]
     Active Substance: NYSTATIN
     Dosage: 100,000 UNITS/GRAM
     Route: 061
     Dates: start: 20171020, end: 20171025

REACTIONS (4)
  - Condition aggravated [Recovered/Resolved]
  - Application site erythema [Recovered/Resolved]
  - Application site reaction [Recovered/Resolved]
  - Application site irritation [Recovered/Resolved]
